FAERS Safety Report 4733860-5 (Version None)
Quarter: 2005Q3

REPORT INFORMATION
  Report Type: 
  Country: None (occurrence: None)
  Receive Date: 20050803
  Receipt Date: 20050502
  Transmission Date: 20060218
  Serious: Yes (Other)
  Sender: FDA-Public Use
  Company Number: US-MERCK-0505USA00386

PATIENT
  Age: 65 Year
  Sex: Female
  Weight: 57 kg

DRUGS (18)
  1. VIOXX [Suspect]
     Indication: ARTHRITIS
     Route: 048
     Dates: start: 20000101, end: 20040101
  2. NEURONTIN [Concomitant]
     Route: 065
  3. COUMADIN [Concomitant]
     Route: 065
  4. PRILOSEC [Concomitant]
     Route: 065
  5. PREMARIN [Concomitant]
     Route: 065
  6. EFFEXOR [Concomitant]
     Route: 065
  7. LASIX [Concomitant]
     Route: 065
  8. SINGULAIR [Concomitant]
     Route: 065
  9. ALLEGRA [Concomitant]
     Route: 065
  10. PREVACID [Concomitant]
     Route: 065
  11. ZESTRIL [Concomitant]
     Route: 065
  12. LOPID [Concomitant]
     Route: 065
  13. PROZAC [Concomitant]
     Route: 065
  14. HYDROCODONE BITARTRATE [Concomitant]
     Route: 065
  15. DIFLUCAN [Concomitant]
     Route: 065
  16. LORTAB [Concomitant]
     Route: 065
  17. SYNTHROID [Concomitant]
     Route: 065
  18. PAXIL [Concomitant]
     Route: 065

REACTIONS (9)
  - BLOOD DISORDER [None]
  - CARDIAC FAILURE [None]
  - CEREBROVASCULAR ACCIDENT [None]
  - CHRONIC OBSTRUCTIVE PULMONARY DISEASE [None]
  - COAGULOPATHY [None]
  - DIABETES MELLITUS [None]
  - GOUT [None]
  - HAEMORRHAGE [None]
  - OVERDOSE [None]
